FAERS Safety Report 9272351 (Version 2)
Quarter: 2013Q2

REPORT INFORMATION
  Report Type: Spontaneous
  Country: US (occurrence: US)
  Receive Date: 20130506
  Receipt Date: 20130611
  Transmission Date: 20140414
  Serious: Yes (Other)
  Sender: FDA-Public Use
  Company Number: US-GILEAD-2013-0074547

PATIENT
  Sex: Female

DRUGS (4)
  1. LETAIRIS [Suspect]
     Indication: PULMONARY ARTERIAL HYPERTENSION
     Route: 048
     Dates: start: 20080708
  2. LETAIRIS [Suspect]
     Indication: HEART DISEASE CONGENITAL
  3. TYVASO [Concomitant]
  4. ADCIRCA [Concomitant]

REACTIONS (4)
  - Heart and lung transplant [Unknown]
  - Heart disease congenital [Unknown]
  - Eisenmenger^s syndrome [Unknown]
  - Pulmonary arterial hypertension [Unknown]
